FAERS Safety Report 4811739-8 (Version None)
Quarter: 2005Q4

REPORT INFORMATION
  Report Type: 
  Country: None (occurrence: None)
  Receive Date: 20051025
  Receipt Date: 20051014
  Transmission Date: 20060501
  Serious: Yes (Other)
  Sender: FDA-Public Use
  Company Number: US-2005-021344

PATIENT
  Sex: Female

DRUGS (10)
  1. CLIMARA 9ESTRADIOL HEMIHYDRATE) PATCH [Suspect]
     Indication: HORMONE REPLACEMENT THERAPY
     Dosage: MG/D, CONT, TRANSDERMAL
     Route: 062
     Dates: start: 19950101, end: 20010401
  2. PREMARIN [Suspect]
     Indication: HORMONE REPLACEMENT THERAPY
     Dates: start: 19900701, end: 20010401
  3. PROVERA [Suspect]
     Indication: HORMONE REPLACEMENT THERAPY
     Dates: start: 19900701, end: 20010401
  4. ESTRACE [Suspect]
     Indication: HORMONE REPLACEMENT THERAPY
     Dates: start: 19900701, end: 20010401
  5. ESTRADERM [Suspect]
     Indication: HORMONE REPLACEMENT THERAPY
     Dates: start: 19900701, end: 20010401
  6. OGEN [Suspect]
     Indication: HORMONE REPLACEMENT THERAPY
     Dates: start: 19900701, end: 20010401
  7. PREMPRO [Suspect]
     Indication: HORMONE REPLACEMENT THERAPY
     Dates: start: 19900701, end: 20010401
  8. PREMPHASE (PREMARIN;CYCRIN 14/14) [Suspect]
     Indication: HORMONE REPLACEMENT THERAPY
     Dates: start: 19900701, end: 20010401
  9. CYCRIN (MEDROXYPROGESTEROEN ACETATE) [Concomitant]
     Indication: HORMONE REPLACEMENT THERAPY
     Dates: start: 19900701, end: 20010401
  10. PROMETRIUM [Suspect]
     Indication: HORMONE REPLACEMENT THERAPY
     Dates: start: 19900701, end: 20010401

REACTIONS (1)
  - BREAST CANCER FEMALE [None]
